FAERS Safety Report 7493437-8 (Version None)
Quarter: 2011Q2

REPORT INFORMATION
  Report Type: 
  Country: None (occurrence: None)
  Receive Date: 20110519
  Receipt Date: 20110519
  Transmission Date: 20111010
  Serious: No
  Sender: FDA-Public Use
  Company Number: None

PATIENT
  Sex: Female
  Weight: 63.5036 kg

DRUGS (2)
  1. VICODIN ES [Suspect]
     Indication: BACK PAIN
     Dosage: 750 MG. 2 A DAY 047
     Dates: start: 20101001, end: 20101101
  2. VICODIN ES [Suspect]
     Indication: ARTHRALGIA
     Dosage: 750 MG. 2 A DAY 047
     Dates: start: 20101001, end: 20101101

REACTIONS (3)
  - DRUG INEFFECTIVE [None]
  - NAUSEA [None]
  - VOMITING [None]
